FAERS Safety Report 13721328 (Version 1)
Quarter: 2017Q3

REPORT INFORMATION
  Report Type: Spontaneous
  Country: US (occurrence: US)
  Receive Date: 20170706
  Receipt Date: 20170706
  Transmission Date: 20171127
  Serious: Yes (Other)
  Sender: FDA-Public Use
  Company Number: US-PROCTER_AND_GAMBLE-GS17072213

PATIENT
  Age: 58 Year
  Sex: Male

DRUGS (2)
  1. CREST 3D WHITE BRILLIANCE [Suspect]
     Active Substance: SODIUM FLUORIDE
     Dosage: AS DIRECTED, TWICE A DAY FOR 3-4 DAYS
     Route: 002
     Dates: start: 201705, end: 201705
  2. CREST 3D WHITE LUXE DIAMOND STRONG [Suspect]
     Active Substance: SODIUM FLUORIDE
     Dosage: AS DIRECTED, TWICE A DAY FOR 3-4 DAYS
     Route: 002
     Dates: start: 201705, end: 201705

REACTIONS (7)
  - Eye swelling [Recovering/Resolving]
  - Gingival swelling [Recovering/Resolving]
  - Gingival discomfort [Recovered/Resolved]
  - Swelling face [Recovering/Resolving]
  - Tooth loss [Not Recovered/Not Resolved]
  - Gingival pain [Recovering/Resolving]
  - Oral discomfort [Unknown]

NARRATIVE: CASE EVENT DATE: 201705
